FAERS Safety Report 9841868 (Version 1)
Quarter: 2013Q4

REPORT INFORMATION
  Report Type: Spontaneous
  Country: US (occurrence: None)
  Receive Date: 20131219
  Receipt Date: 20131219
  Transmission Date: 20140711
  Serious: Yes (Other)
  Sender: FDA-Public Use
  Company Number: 163-20785-13020162

PATIENT
  Age: 60 Year
  Sex: Male

DRUGS (8)
  1. THALOMID (THALIDOMIDE) (100 MILLIGRAM, CAPSULES) [Suspect]
     Indication: PLASMA CELL MYELOMA
     Route: 048
     Dates: start: 200811
  2. ACYCLOVIR (ACICLOVIR) (ACICLOVIR) [Concomitant]
  3. CALCIUM CITRATE (CALCIUM CITRATE) [Concomitant]
  4. DEXAMETHASONE (DEXAMETHASONE) [Concomitant]
  5. LOVENOX (HEPARIN-FRACTION, SODUM SALT) [Concomitant]
  6. MULTIVITAMINS (MULTIVITAMINS) [Concomitant]
  7. PERIDEX (CHLORHEXIDINE GLUCONATE) [Concomitant]
  8. ZOMETA (ZOLEDRONIC ACID) [Concomitant]

REACTIONS (1)
  - Deep vein thrombosis [None]
